FAERS Safety Report 18234450 (Version 1)
Quarter: 2020Q3

REPORT INFORMATION
  Report Type: Spontaneous
  Country: TH (occurrence: TH)
  Receive Date: 20200904
  Receipt Date: 20200904
  Transmission Date: 20201103
  Serious: Yes (Death, Other)
  Sender: FDA-Public Use
  Company Number: TH-B.I. PHARMACEUTICALS,INC./RIDGEFIELD-2020-BI-044857

PATIENT

DRUGS (1)
  1. OFEV [Suspect]
     Active Substance: NINTEDANIB
     Indication: PRODUCT USED FOR UNKNOWN INDICATION
     Route: 065

REACTIONS (20)
  - Gastrointestinal disorder [Unknown]
  - Melaena [Unknown]
  - Electrolyte imbalance [Unknown]
  - Hepatic function abnormal [Unknown]
  - Decreased appetite [Unknown]
  - Nausea [Unknown]
  - Death [Fatal]
  - Neoplasm malignant [Unknown]
  - Fatigue [Unknown]
  - Diarrhoea [Unknown]
  - Hepatic enzyme increased [Unknown]
  - Hepatitis [Unknown]
  - Respiratory disorder [Unknown]
  - Pneumonia [Unknown]
  - Cough [Unknown]
  - Chronic kidney disease [Unknown]
  - Lip and/or oral cavity cancer [Unknown]
  - Chest pain [Unknown]
  - Dyspnoea [Unknown]
  - Condition aggravated [Unknown]
